FAERS Safety Report 22587568 (Version 1)
Quarter: 2023Q2

REPORT INFORMATION
  Report Type: Spontaneous
  Country: CO (occurrence: CO)
  Receive Date: 20230612
  Receipt Date: 20230612
  Transmission Date: 20230721
  Serious: Yes (Hospitalization, Other)
  Sender: FDA-Public Use
  Company Number: CO-SA-SAC20230609000186

PATIENT
  Age: 63 Year
  Sex: Female

DRUGS (1)
  1. PRALUENT [Suspect]
     Active Substance: ALIROCUMAB
     Indication: Hypercholesterolaemia
     Dosage: 150 MG, QOW
     Route: 058
     Dates: start: 20200601

REACTIONS (2)
  - Arrhythmia [Unknown]
  - Chest pain [Unknown]

NARRATIVE: CASE EVENT DATE: 20230601
